FAERS Safety Report 4444117-4 (Version None)
Quarter: 2004Q3

REPORT INFORMATION
  Report Type: 
  Country: None (occurrence: None)
  Receive Date: 20040729
  Receipt Date: 20031201
  Transmission Date: 20050211
  Serious: Yes (Death)
  Sender: FDA-Public Use
  Company Number: USA-2003-0011945

PATIENT
  Age: 42 Year
  Sex: Female
  Weight: 91.6 kg

DRUGS (11)
  1. MORPHINE SULFATE [Suspect]
  2. METAHDONE (METHADONE) [Suspect]
  3. PROPOXYPHENE HCL [Suspect]
  4. TRAMADOL HCL [Suspect]
  5. AMITRIPTYLINE HCL [Suspect]
  6. CYCLOBENZAPRINE HCL [Suspect]
  7. ACETAMINOPHEN [Suspect]
  8. CELEXA [Suspect]
  9. EFFEXOR [Suspect]
  10. NEURONTIN [Suspect]
  11. DURAGESIC [Concomitant]

REACTIONS (1)
  - ACCIDENTAL OVERDOSE [None]
